FAERS Safety Report 9204014 (Version 1)
Quarter: 2013Q1

REPORT INFORMATION
  Report Type: Spontaneous
  Country: US (occurrence: None)
  Receive Date: 20120709
  Receipt Date: 20120709
  Transmission Date: 20140127
  Serious: No
  Sender: FDA-Public Use
  Company Number: 2012HGS-003414

PATIENT
  Age: 49 Year
  Sex: Female
  Weight: 78.93 kg

DRUGS (8)
  1. BENLYSTA [Suspect]
     Dosage: 1 IN 14 D
     Route: 041
     Dates: start: 20120307
  2. CELCEPT (MYCOPHENOLATE MOFETIL) (MYCOPHENOLATE MOFETIL) [Concomitant]
  3. PLAQUENIL (HYDROXYCHLOROQUINE PHOSPHATE) (HYDROXYCHLOROQUINE PHOSPHATE) [Concomitant]
  4. LEVOTHYROXINE (LEVOTHYROXINE) (LEVOTHYROXINE) [Concomitant]
  5. WARFARIN (WARFARIN) (WAARFARIN) [Concomitant]
  6. FUROSEMIDE [Concomitant]
  7. ZOLPIDEM (ZOLPIDEM) (ZOLPIDEM) [Concomitant]
  8. IMURAN (AZATHIOPRINE) (AZATHIOPRINE) [Concomitant]

REACTIONS (1)
  - Diarrhoea [None]
